FAERS Safety Report 9815455 (Version 1)
Quarter: 2014Q1

REPORT INFORMATION
  Report Type: Spontaneous
  Country: US (occurrence: US)
  Receive Date: 20140114
  Receipt Date: 20140114
  Transmission Date: 20141002
  Serious: No
  Sender: FDA-Public Use
  Company Number: US-PFIZER INC-2014008579

PATIENT
  Age: 58 Year
  Sex: Female
  Weight: 64.4 kg

DRUGS (2)
  1. EFFEXOR [Suspect]
     Indication: DEPRESSION
     Dosage: 37.5 MG, 1X/DAY
     Route: 048
     Dates: start: 201311
  2. PRILOSEC [Concomitant]
     Dosage: UNK, AS NEEDED

REACTIONS (1)
  - Drug screen false positive [Unknown]
